FAERS Safety Report 25032634 (Version 7)
Quarter: 2025Q4

REPORT INFORMATION
  Report Type: Report from Study
  Country: US (occurrence: US)
  Receive Date: 20250303
  Receipt Date: 20251008
  Transmission Date: 20260117
  Serious: Yes (Hospitalization)
  Sender: TAKEDA
  Company Number: US-TAKEDA-2025TUS021303

PATIENT
  Sex: Female

DRUGS (5)
  1. LANADELUMAB [Suspect]
     Active Substance: LANADELUMAB
     Indication: Immune system disorder
     Dosage: 300 MILLIGRAM, Q2WEEKS
     Dates: start: 202502
  2. LANADELUMAB [Suspect]
     Active Substance: LANADELUMAB
     Dosage: 300 MG/2 ML, Q2WEEKS
  3. LANADELUMAB [Suspect]
     Active Substance: LANADELUMAB
     Dosage: 300 MG, Q2WEEKS
  4. FIRAZYR [Suspect]
     Active Substance: ICATIBANT ACETATE
     Indication: Immune system disorder
     Dosage: 30 MILLIGRAM
  5. FIRAZYR [Suspect]
     Active Substance: ICATIBANT ACETATE
     Dosage: UNK

REACTIONS (5)
  - Hereditary angioedema [Recovered/Resolved]
  - Weight increased [Unknown]
  - Weight decreased [Unknown]
  - Product dose omission issue [Unknown]
  - Dizziness [Unknown]

NARRATIVE: CASE EVENT DATE: 20250806
